FAERS Safety Report 23458598 (Version 1)
Quarter: 2024Q1

REPORT INFORMATION
  Report Type: Spontaneous
  Country: PK (occurrence: PK)
  Receive Date: 20240130
  Receipt Date: 20240130
  Transmission Date: 20240410
  Serious: Yes (Other)
  Sender: FDA-Public Use
  Company Number: PK-PFIZER INC-PV202200043000

PATIENT
  Age: 22 Year
  Sex: Female
  Weight: 89 kg

DRUGS (23)
  1. ENBREL [Suspect]
     Active Substance: ETANERCEPT
     Indication: Seronegative arthritis
     Dosage: 50 MG, ONCE A WEEK
     Route: 058
     Dates: start: 20230120
  2. ENBREL [Suspect]
     Active Substance: ETANERCEPT
     Indication: Rheumatoid arthritis
     Dosage: UNK
     Route: 065
  3. METHOTREXATE [Concomitant]
     Active Substance: METHOTREXATE
     Indication: Product used for unknown indication
     Dosage: 22.5 MG, WEEKLY
     Route: 065
  4. METHOTREXATE [Concomitant]
     Active Substance: METHOTREXATE
     Dosage: 25 MG, WEEKLY
     Route: 065
     Dates: start: 2023
  5. HYDROXYCHLOROQUINE SULFATE [Concomitant]
     Active Substance: HYDROXYCHLOROQUINE SULFATE
     Indication: Product used for unknown indication
     Dosage: 200 MG, 1X/DAY
     Route: 065
  6. HYDROXYCHLOROQUINE SULFATE [Concomitant]
     Active Substance: HYDROXYCHLOROQUINE SULFATE
     Dosage: 200 MG, 1X/DAY
     Route: 065
  7. FOLIC ACID [Concomitant]
     Active Substance: FOLIC ACID
     Indication: Product used for unknown indication
     Dosage: 5 MG, 1X/DAY(1 + 0 + 0 + 0, 1 TAB IN MORNING CONTINUE, OFF SAT AND SUN)
  8. Sunny d [Concomitant]
     Indication: Product used for unknown indication
     Dosage: 1 CAPSULE ONCE IN 2 MONTHS
  9. NUBEROL [Concomitant]
     Indication: Pain
     Dosage: 2X/DAY (1 TAB IN AFTERNOON AFTER MEAL )
  10. NUBEROL [Concomitant]
     Dosage: 1 + 1 IN MORNING AND EVENING AFTER MEAL AS PER NEED
     Route: 065
  11. DELTACORTRIL [Concomitant]
     Active Substance: PREDNISOLONE
     Indication: Product used for unknown indication
     Dosage: 3 TABS IN MORNING AFTER MEAL FOR 5 DAYS
  12. DELTACORTRIL [Concomitant]
     Active Substance: PREDNISOLONE
     Dosage: 2.5 TAB IN MORNING AFTER MEAL FOR 5 DAYS
     Route: 065
  13. DELTACORTRIL [Concomitant]
     Active Substance: PREDNISOLONE
     Dosage: 2.5 TAB IN MORNING AFTER MEAL FOR 5 DAYS
     Route: 065
  14. DELTACORTRIL [Concomitant]
     Active Substance: PREDNISOLONE
     Dosage: 2.5 TAB IN MORNING AFTER MEAL FOR 5 DAYS
     Route: 065
  15. DELTACORTRIL [Concomitant]
     Active Substance: PREDNISOLONE
     Dosage: 2 TABS IN MORNING AFTER MEAL FOR 5 DAYS
     Route: 065
  16. DELTACORTRIL [Concomitant]
     Active Substance: PREDNISOLONE
     Dosage: 1 TABS IN MORNING AFTER MEAL FOR 5 DAYS
     Route: 065
  17. DELTACORTRIL [Concomitant]
     Active Substance: PREDNISOLONE
     Dosage: 1 TABS IN MORNING AFTER MEAL FOR 5 DAYS
     Route: 065
  18. DELTACORTRIL [Concomitant]
     Active Substance: PREDNISOLONE
     Dosage: 1 + 0 + 0 + 0 , AFTER MEAL, 1 TAB IN MORNING
     Route: 065
  19. DELTACORTRIL [Concomitant]
     Active Substance: PREDNISOLONE
     Dosage: 5 MG, 1X/DAY
     Dates: start: 2021
  20. Gencox [Concomitant]
     Indication: Product used for unknown indication
     Dosage: 1X/DAY (1 TAB IN EVENING AFTER MEAL FOR 2 WEEKS)
     Route: 065
  21. NEXIUM [Concomitant]
     Active Substance: ESOMEPRAZOLE MAGNESIUM
     Indication: Product used for unknown indication
     Dosage: 40 MG, 1X/DAY (1 CAP IN MORNING BEFORE MEAL FOR 4 WEEKS)
     Route: 065
  22. CYTOTREXATE [Concomitant]
     Dosage: 10 MG, 2X/WEEK (10 MG, 1X TABLETS, TWO TIMES A WEEK, AFTER MEAL)
  23. ETORICOXIB [Concomitant]
     Active Substance: ETORICOXIB
     Indication: Product used for unknown indication
     Dosage: 60 MG(0 + 0 + 1 + 0, 1 TAB IN EVENING AFTER MEAL FOR 4 WEEKS)
     Route: 065

REACTIONS (8)
  - Body mass index increased [Unknown]
  - Pain in extremity [Unknown]
  - Red blood cell sedimentation rate increased [Unknown]
  - Haemoglobin decreased [Unknown]
  - Eye irritation [Unknown]
  - Condition aggravated [Unknown]
  - Off label use [Unknown]
  - Arthralgia [Unknown]

NARRATIVE: CASE EVENT DATE: 20240123
